FAERS Safety Report 9925119 (Version 3)
Quarter: 2014Q3

REPORT INFORMATION
  Report Type: Spontaneous
  Country: US (occurrence: None)
  Receive Date: 20140221
  Receipt Date: 20140718
  Transmission Date: 20150326
  Serious: Yes (Hospitalization, Other)
  Sender: FDA-Public Use
  Company Number: 2014-US-001860

PATIENT
  Age: 69 Year
  Sex: Female

DRUGS (1)
  1. XYREM [Suspect]
     Active Substance: SODIUM OXYBATE
     Indication: NARCOLEPSY
     Route: 048
     Dates: start: 200905, end: 2009

REACTIONS (6)
  - Coronary artery bypass [None]
  - Back injury [None]
  - Wrist fracture [None]
  - Fall [None]
  - Rib fracture [None]
  - Lumbar vertebral fracture [None]

NARRATIVE: CASE EVENT DATE: 20140103
